FAERS Safety Report 9698610 (Version 1)
Quarter: 2013Q4

REPORT INFORMATION
  Report Type: Spontaneous
  Country: FR (occurrence: FR)
  Receive Date: 20131120
  Receipt Date: 20131120
  Transmission Date: 20140711
  Serious: Yes (Hospitalization)
  Sender: FDA-Public Use
  Company Number: FR-GLAXOSMITHKLINE-B0946622A

PATIENT
  Age: 8 Year
  Sex: Female

DRUGS (2)
  1. ALKERAN [Suspect]
     Indication: TRANSPLANT
     Dosage: 140MGM2 PER DAY
     Route: 042
     Dates: start: 20130528, end: 20130528
  2. BUSULFAN [Suspect]
     Indication: TRANSPLANT
     Dosage: 1.15MGK PER DAY
     Route: 042
     Dates: start: 20130523, end: 20130527

REACTIONS (1)
  - Cystitis haemorrhagic [Recovered/Resolved]
